FAERS Safety Report 6764343-9 (Version None)
Quarter: 2010Q2

REPORT INFORMATION
  Report Type: 
  Country: None (occurrence: None)
  Receive Date: 20100610
  Receipt Date: 20100601
  Transmission Date: 20101027
  Serious: Yes (Other)
  Sender: FDA-Public Use
  Company Number: BR-PFIZER INC-2010068521

PATIENT
  Age: 57 Year
  Sex: Female
  Weight: 72 kg

DRUGS (3)
  1. UNASYN [Suspect]
     Indication: DIVERTICULITIS
     Dosage: UNK
     Route: 042
     Dates: start: 20100401
  2. UNASYN [Suspect]
     Dosage: 375 MG, 2X/DAY, EVERY 12 HOURS
     Route: 048
     Dates: start: 20100523, end: 20100530
  3. MESACOL [Concomitant]
     Indication: DIVERTICULITIS
     Dosage: UNK
     Dates: start: 20100421

REACTIONS (4)
  - ABDOMINAL PAIN [None]
  - DIARRHOEA [None]
  - RECTAL HAEMORRHAGE [None]
  - VOMITING [None]
